FAERS Safety Report 14800251 (Version 2)
Quarter: 2018Q2

REPORT INFORMATION
  Report Type: Spontaneous
  Country: US (occurrence: US)
  Receive Date: 20180424
  Receipt Date: 20180525
  Transmission Date: 20180711
  Serious: No
  Sender: FDA-Public Use
  Company Number: US-PFIZER INC-2018167129

PATIENT
  Age: 66 Year
  Sex: Female
  Weight: 83.91 kg

DRUGS (8)
  1. TIROSINT [Concomitant]
     Active Substance: LEVOTHYROXINE SODIUM
     Dosage: 88 UG, UNK (ON SATURDAYS 75 MCG+ 13 MCG (AVG DAILY DOSE, 88 MCG))
  2. VITAMIN D [Concomitant]
     Active Substance: CHOLECALCIFEROL
     Dosage: UNK (1000)
  3. CYTOMEL [Suspect]
     Active Substance: LIOTHYRONINE SODIUM
     Indication: AUTOIMMUNE THYROIDITIS
     Dosage: 5 UG, 2X/DAY
     Route: 048
     Dates: start: 201308
  4. GAMMAGARD LIQUID [Concomitant]
     Active Substance: HUMAN IMMUNOGLOBULIN G
     Dosage: 35 G, MONTHLY (EVERY 28 DAYS)
     Route: 041
  5. CRESTOR [Concomitant]
     Active Substance: ROSUVASTATIN CALCIUM
     Dosage: 5 MG, DAILY
  6. CYTOMEL [Suspect]
     Active Substance: LIOTHYRONINE SODIUM
     Indication: HYPOTHYROIDISM
     Dosage: 5 UG, DAILY (A.M.)
     Route: 048
     Dates: start: 20180330
  7. CALCIUM 600+VITAMIN D3 400 [Concomitant]
     Dosage: 1 DF, DAILY
  8. TIROSINT [Concomitant]
     Active Substance: LEVOTHYROXINE SODIUM
     Dosage: 91 UG, UNK (13 MCG 7 CAPSULES DAILY FOR 6 DAYS)

REACTIONS (1)
  - Alopecia [Not Recovered/Not Resolved]

NARRATIVE: CASE EVENT DATE: 2016
